FAERS Safety Report 20644570 (Version 1)
Quarter: 2022Q1

REPORT INFORMATION
  Report Type: Spontaneous
  Country: US (occurrence: US)
  Receive Date: 20220328
  Receipt Date: 20220328
  Transmission Date: 20220423
  Serious: No
  Sender: FDA-Public Use
  Company Number: US-SANOFI-01029710

PATIENT
  Sex: Female

DRUGS (1)
  1. LANTUS SOLOSTAR [Suspect]
     Active Substance: INSULIN GLARGINE
     Indication: Diabetes mellitus
     Dosage: DRUG STRUCTURE DOSAGE : 20-30 UNITS DRUG INTERVAL DOSAGE : DRUG TREATMENT DURATION:

REACTIONS (3)
  - Injection site pain [Unknown]
  - Intentional product misuse [Unknown]
  - Multiple use of single-use product [Unknown]
